FAERS Safety Report 4709950-X (Version None)
Quarter: 2005Q3

REPORT INFORMATION
  Report Type: 
  Country: None (occurrence: None)
  Receive Date: 20050708
  Receipt Date: 20050623
  Transmission Date: 20060218
  Serious: Yes (Hospitalization)
  Sender: FDA-Public Use
  Company Number: DE-BOEHRINGER INGELHEIM PHARMACEUTICALS, INC.-2005-DE-02457DE

PATIENT
  Sex: Female
  Weight: 78 kg

DRUGS (3)
  1. TIPRANAVIR [Suspect]
     Indication: HIV INFECTION
     Dosage: TIPRANAVIR 1000 MG/RTV 400 MG
     Route: 048
     Dates: start: 20050412
  2. VIREAD [Suspect]
     Indication: HIV INFECTION
     Route: 048
     Dates: start: 20050412
  3. FUZEON [Concomitant]
     Indication: HIV INFECTION
     Route: 048
     Dates: start: 20050412

REACTIONS (4)
  - ANAL HAEMORRHAGE [None]
  - ANAL ULCER [None]
  - CONDITION AGGRAVATED [None]
  - DIARRHOEA [None]
